FAERS Safety Report 25666341 (Version 4)
Quarter: 2025Q4

REPORT INFORMATION
  Report Type: Report from Study
  Country: EU (occurrence: EU)
  Receive Date: 20250811
  Receipt Date: 20251128
  Transmission Date: 20260118
  Serious: Yes (Other)
  Sender: NOVARTIS
  Company Number: EU-002147023-NVSC2025IT021397

PATIENT
  Age: 27 Year
  Sex: Female

DRUGS (4)
  1. KESIMPTA [Suspect]
     Active Substance: OFATUMUMAB
     Indication: Multiple sclerosis
     Dosage: 20 MG
     Route: 058
     Dates: start: 20250122
  2. KESIMPTA [Suspect]
     Active Substance: OFATUMUMAB
     Indication: Relapsing-remitting multiple sclerosis
  3. GABAPENTIN [Concomitant]
     Active Substance: GABAPENTIN
     Indication: Paraesthesia
     Dosage: 300 MG
     Route: 048
     Dates: start: 20241217, end: 20250720
  4. GABAPENTIN [Concomitant]
     Active Substance: GABAPENTIN
     Indication: Multiple sclerosis

REACTIONS (6)
  - Hypogammaglobulinaemia [Recovering/Resolving]
  - Oral herpes [Recovered/Resolved]
  - Pyrexia [Recovered/Resolved]
  - Dysmenorrhoea [Recovered/Resolved]
  - Influenza [Recovered/Resolved]
  - Oral herpes [Recovered/Resolved]

NARRATIVE: CASE EVENT DATE: 20250122
